FAERS Safety Report 5915848-1 (Version None)
Quarter: 2008Q4

REPORT INFORMATION
  Report Type: 
  Country: None (occurrence: None)
  Receive Date: 20081010
  Receipt Date: 20081006
  Transmission Date: 20090506
  Serious: Yes (Death, Hospitalization)
  Sender: FDA-Public Use
  Company Number: IL-ABBOTT-08P-082-0480170-00

PATIENT
  Sex: Female
  Weight: 56 kg

DRUGS (13)
  1. KALETRA [Suspect]
     Indication: HIV INFECTION
     Dates: start: 20080330, end: 20080818
  2. STEROIDS [Suspect]
     Indication: PEMPHIGUS
  3. WARFARIN SODIUM [Suspect]
     Indication: DEEP VEIN THROMBOSIS
     Dates: start: 20080312
  4. EMTRICITABINE [Concomitant]
     Indication: HIV INFECTION
     Dates: start: 20080330
  5. RESPRIM FORTE [Concomitant]
     Indication: ANTIFUNGAL PROPHYLAXIS
     Dates: start: 20080330
  6. PREDNISONE TAB [Concomitant]
     Indication: PEMPHIGUS
     Dates: start: 20030828
  7. ALENDRONATE SODIUM [Concomitant]
     Indication: OSTEOPOROSIS
     Dates: start: 20061116
  8. BACLOFEN [Concomitant]
     Indication: URINARY INCONTINENCE
     Dates: start: 20080128
  9. OXYBUTYNIN CHLORIDE [Concomitant]
     Indication: URINARY INCONTINENCE
     Dates: start: 20071127
  10. FAMOTIDINE [Concomitant]
     Indication: GASTRITIS
     Dates: start: 20061116
  11. ENALAPRIL MALEATE [Concomitant]
     Indication: HYPERTENSION
     Dates: start: 20040104
  12. ENOXAPARIN SODIUM [Concomitant]
     Indication: DEEP VEIN THROMBOSIS
     Dates: start: 20080427, end: 20080818
  13. ENOXAPARIN SODIUM [Concomitant]
     Indication: PULMONARY EMBOLISM

REACTIONS (5)
  - AIDS DEMENTIA COMPLEX [None]
  - DEEP VEIN THROMBOSIS [None]
  - GENERAL PHYSICAL HEALTH DETERIORATION [None]
  - MYOPATHY [None]
  - PULMONARY EMBOLISM [None]
